FAERS Safety Report 9358402 (Version 2)
Quarter: 2013Q3

REPORT INFORMATION
  Report Type: Report from Study
  Country: BR (occurrence: BR)
  Receive Date: 20130620
  Receipt Date: 20130819
  Transmission Date: 20140515
  Serious: Yes (Other)
  Sender: FDA-Public Use
  Company Number: PHHY2013BR062890

PATIENT
  Sex: Female

DRUGS (1)
  1. RASILEZ HCT [Suspect]
     Indication: BLOOD PRESSURE ABNORMAL
     Dosage: 1 DF (150MG AILS/12.5MG HCT), QD
     Dates: start: 20130323, end: 20130522

REACTIONS (2)
  - Glucose tolerance impaired [Recovering/Resolving]
  - Blood pressure increased [Recovering/Resolving]
